FAERS Safety Report 17653188 (Version 2)
Quarter: 2020Q2

REPORT INFORMATION
  Report Type: Report from Study
  Country: US (occurrence: US)
  Receive Date: 20200409
  Receipt Date: 20200422
  Transmission Date: 20200713
  Serious: Yes (Hospitalization, Other)
  Sender: FDA-Public Use
  Company Number: US-BRISTOL-MYERS SQUIBB COMPANY-BMS-2020-028239

PATIENT
  Age: 61 Year
  Sex: Male
  Weight: 67.8 kg

DRUGS (3)
  1. NIVOLUMAB [Suspect]
     Active Substance: NIVOLUMAB
     Indication: HEPATOCELLULAR CARCINOMA
     Dosage: 240 MILLIGRAM, Q2WK
     Route: 042
     Dates: start: 20191227
  2. LINRODOSTAT MESYLATE [Suspect]
     Active Substance: LINRODOSTAT MESYLATE
     Indication: HEPATOCELLULAR CARCINOMA
     Dosage: 100 MILLIGRAM, QD
     Route: 048
     Dates: start: 20191227
  3. PREDNISONE. [Concomitant]
     Active Substance: PREDNISONE
     Indication: TRANSAMINASES INCREASED
     Dosage: 40 MILLIGRAM, QD
     Route: 065
     Dates: start: 20200320

REACTIONS (2)
  - Hyperglycaemia [Recovering/Resolving]
  - Pancreatitis [Recovering/Resolving]

NARRATIVE: CASE EVENT DATE: 20200330
